FAERS Safety Report 6751319-0 (Version None)
Quarter: 2010Q2

REPORT INFORMATION
  Report Type: 
  Country: None (occurrence: None)
  Receive Date: 20100602
  Receipt Date: 20100526
  Transmission Date: 20101027
  Serious: Yes (Other)
  Sender: FDA-Public Use
  Company Number: JP-MPIJNJ-2010-02753

PATIENT

DRUGS (1)
  1. VELCADE [Suspect]
     Indication: MULTIPLE MYELOMA
     Route: 042

REACTIONS (4)
  - CHEST PAIN [None]
  - NEUROPATHY PERIPHERAL [None]
  - POLYARTERITIS NODOSA [None]
  - SPINAL COMPRESSION FRACTURE [None]
